FAERS Safety Report 10387084 (Version 1)
Quarter: 2014Q1

REPORT INFORMATION
  Report Type: Spontaneous
  Country: US (occurrence: None)
  Receive Date: 20140306
  Receipt Date: 20140306
  Transmission Date: 20141002
  Serious: Yes (Other)
  Sender: FDA-Public Use
  Company Number: 163-21880-13043073

PATIENT
  Age: 72 Year
  Sex: Female

DRUGS (18)
  1. REVLIMID [Suspect]
     Indication: PLASMA CELL MYELOMA
     Route: 048
     Dates: start: 201010
  2. ASA (ACETYLSALICYLIC ACID) [Concomitant]
  3. DECADRON (DEXAMETHASONE) [Concomitant]
  4. ACYCLOVIR (ACICLOVIR) (ACICLOVIR) [Concomitant]
  5. CARVEDILOL [Concomitant]
  6. CLOPIDOGREL [Concomitant]
  7. CRESTOR (ROSUVASTATIN) [Concomitant]
  8. IPRATROPIUM [Concomitant]
  9. IMDUR (ISOSORBIDE MONONITRATE) [Concomitant]
  10. SYNTHROID (LEVOTHYROXINE SODIUM) [Concomitant]
  11. OMEPRAZOLE [Concomitant]
  12. NIASPAN (NICOTINIC ACID) [Concomitant]
  13. NITROGLYCERIN (GLYCERYL TRINITRATE) [Concomitant]
  14. ZALEPLON [Concomitant]
  15. MAGNESIUM OXIDE [Concomitant]
  16. CALCIUM [Concomitant]
  17. FISH OIL [Concomitant]
  18. VITAMIN D (ERGOCALCIFEROL) [Concomitant]

REACTIONS (1)
  - Thrombophlebitis superficial [None]
